FAERS Safety Report 18722183 (Version 1)
Quarter: 2021Q1

REPORT INFORMATION
  Report Type: Spontaneous
  Country: BR (occurrence: BR)
  Receive Date: 20210111
  Receipt Date: 20210111
  Transmission Date: 20210419
  Serious: Yes (Hospitalization)
  Sender: FDA-Public Use
  Company Number: BR-ROCHE-2746796

PATIENT
  Age: 60 Year
  Sex: Male
  Weight: 102 kg

DRUGS (1)
  1. ACTEMRA [Suspect]
     Active Substance: TOCILIZUMAB
     Indication: RHEUMATOID ARTHRITIS
     Dosage: 800 MG INTRAVENOUS IN 1 HOUR EVERY 4 WEEKS
     Route: 042
     Dates: start: 20201209, end: 20201209

REACTIONS (1)
  - Hyperaemia [Recovered/Resolved]

NARRATIVE: CASE EVENT DATE: 20201209
